FAERS Safety Report 24555872 (Version 1)
Quarter: 2024Q4

REPORT INFORMATION
  Report Type: Spontaneous
  Country: CN (occurrence: CN)
  Receive Date: 20241028
  Receipt Date: 20241028
  Transmission Date: 20250115
  Serious: Yes (Hospitalization)
  Sender: PFIZER
  Company Number: CN-PFIZER INC-PV202400137699

PATIENT
  Age: 66 Year
  Sex: Female
  Weight: 58 kg

DRUGS (4)
  1. EPIRUBICIN [Suspect]
     Active Substance: EPIRUBICIN
     Indication: Breast cancer
     Dosage: 60 MG, 1X/DAY
     Route: 041
     Dates: start: 20240928, end: 20240929
  2. EPIRUBICIN [Suspect]
     Active Substance: EPIRUBICIN
     Dosage: 60 MG, 1X/DAY
     Route: 041
     Dates: start: 20241012, end: 20241013
  3. CYCLOPHOSPHAMIDE [Suspect]
     Active Substance: CYCLOPHOSPHAMIDE
     Indication: Breast cancer
     Dosage: 0.8 G, 1X/DAY
     Route: 041
     Dates: start: 20240928, end: 20240928
  4. CYCLOPHOSPHAMIDE [Suspect]
     Active Substance: CYCLOPHOSPHAMIDE
     Dosage: 0.8 G, 1X/DAY
     Route: 041
     Dates: start: 20241012, end: 20241012

REACTIONS (2)
  - Myelosuppression [Recovering/Resolving]
  - Liver injury [Recovering/Resolving]

NARRATIVE: CASE EVENT DATE: 20241007
